FAERS Safety Report 16014538 (Version 1)
Quarter: 2019Q1

REPORT INFORMATION
  Report Type: Report from Study
  Country: ES (occurrence: ES)
  Receive Date: 20190227
  Receipt Date: 20190227
  Transmission Date: 20190418
  Serious: Yes (Other)
  Sender: FDA-Public Use
  Company Number: ES-MYLANLABS-2019M1018341

PATIENT
  Age: 51 Year
  Sex: Male

DRUGS (3)
  1. IRBESARTAN. [Suspect]
     Active Substance: IRBESARTAN
     Indication: HYPERTENSION
     Dosage: 300 MILLIGRAM, QD (300MG CADA 24 HORAS)
     Route: 048
     Dates: start: 20170404, end: 20170724
  2. ALOPURINOL [Concomitant]
     Active Substance: ALLOPURINOL
     Indication: HYPERURICAEMIA
     Dosage: 300 MILLIGRAM, QD
     Route: 048
     Dates: start: 20160223
  3. ALDACTONE [Interacting]
     Active Substance: SPIRONOLACTONE
     Indication: CHRONIC HEPATITIS
     Dosage: 100 MILLIGRAM, QD (100MG CADA 24 HORAS)
     Route: 048
     Dates: start: 20170426

REACTIONS (2)
  - Hyperkalaemia [Recovered/Resolved]
  - Drug interaction [Unknown]

NARRATIVE: CASE EVENT DATE: 20170724
